FAERS Safety Report 9255930 (Version 1)
Quarter: 2013Q2

REPORT INFORMATION
  Report Type: Spontaneous
  Country: US (occurrence: US)
  Receive Date: 20130425
  Receipt Date: 20130425
  Transmission Date: 20140414
  Serious: No
  Sender: FDA-Public Use
  Company Number: US-ASTRAZENECA-2013SE24638

PATIENT
  Sex: Female

DRUGS (3)
  1. NEXIUM [Suspect]
     Indication: GASTROOESOPHAGEAL REFLUX DISEASE
     Dosage: 2 TABLETS, DAILY
     Route: 048
  2. NEXIUM [Suspect]
     Indication: GASTRIC DISORDER
     Dosage: 2 TABLETS, DAILY
     Route: 048
  3. PRILOSEC [Suspect]
     Route: 048

REACTIONS (4)
  - Malaise [Unknown]
  - Off label use [Unknown]
  - Intentional drug misuse [Unknown]
  - Drug ineffective [Unknown]
